FAERS Safety Report 7788233-8 (Version None)
Quarter: 2011Q3

REPORT INFORMATION
  Report Type: 
  Country: None (occurrence: None)
  Receive Date: 20110927
  Receipt Date: 20110912
  Transmission Date: 20111222
  Serious: Yes (Life-Threatening, Hospitalization)
  Sender: FDA-Public Use
  Company Number: SO5-DEN-01398-01

PATIENT
  Age: 90 Year
  Sex: Female
  Weight: 47 kg

DRUGS (3)
  1. MEMANTINE HYDROCHLORIDE [Suspect]
     Indication: DEMENTIA ALZHEIMER'S TYPE
     Dosage: 20 MG (10 MG, 2 IN 1 D),ORAL
     Route: 048
     Dates: start: 20031218
  2. PERSANTIN RETARD (DIPYRIDAMOLE) (200, TABLETS) DIPYRIDAMOLE) [Concomitant]
  3. METHOTREXATE [Suspect]
     Indication: PSORIASIS
     Dosage: 1.0714 MG (7.5 MG, 1  IN 1 WK),ORAL
     Route: 048
     Dates: start: 20050202

REACTIONS (4)
  - LEUKOPENIA [None]
  - THROMBOCYTOPENIA [None]
  - GRANULOCYTOPENIA [None]
  - DRUG INTERACTION [None]
